FAERS Safety Report 13776141 (Version 1)
Quarter: 2017Q3

REPORT INFORMATION
  Report Type: Not Available
  Country: JP (occurrence: JP)
  Receive Date: 20170720
  Receipt Date: 20170720
  Transmission Date: 20171127
  Serious: Yes (Hospitalization)
  Sender: FDA-Public Use
  Company Number: JP-ANIPHARMA-2017-JP-000054

PATIENT
  Age: 30 Year
  Sex: Male

DRUGS (11)
  1. RISPERIDONE (NON-SPECIFIC) [Suspect]
     Active Substance: RISPERIDONE
     Dosage: 8MG
     Route: 048
  2. FLUNITRAZEPAM [Suspect]
     Active Substance: FLUNITRAZEPAM
     Dosage: 2MG
     Route: 048
  3. QUAZEPAM. [Suspect]
     Active Substance: QUAZEPAM
     Dosage: 15MG
     Route: 048
  4. VALPROIC ACID (NON-SPECIFIC) [Suspect]
     Active Substance: VALPROIC ACID
     Dosage: 1000MG
     Route: 048
  5. ALPRAZOLAM (NON-SPECIFIC) [Suspect]
     Active Substance: ALPRAZOLAM
     Dosage: 1.2MG
     Route: 048
  6. CHLORPROMAZINE. [Suspect]
     Active Substance: CHLORPROMAZINE
     Dosage: 225MG
     Route: 048
  7. ESTAZOLAM. [Suspect]
     Active Substance: ESTAZOLAM
     Dosage: 2MG
     Route: 048
  8. TRIHEXYPHENIDYL [Suspect]
     Active Substance: TRIHEXYPHENIDYL
     Dosage: 6MG
     Route: 048
  9. LEVOMEPROMAZINE [Suspect]
     Active Substance: LEVOMEPROMAZINE
     Dosage: 50MG
     Route: 048
  10. UNSPECIFIED PHENOTHIAZINE [Suspect]
     Active Substance: UNSPECIFIED INGREDIENT
     Route: 048
  11. BIPERIDEN [Suspect]
     Active Substance: BIPERIDEN
     Dosage: 4MG
     Route: 048

REACTIONS (3)
  - Hyperthermia malignant [Recovered/Resolved]
  - Osmotic demyelination syndrome [Recovered/Resolved]
  - Inappropriate antidiuretic hormone secretion [Recovered/Resolved]
